FAERS Safety Report 25471275 (Version 9)
Quarter: 2025Q3

REPORT INFORMATION
  Report Type: Spontaneous
  Country: US (occurrence: US)
  Receive Date: 20250624
  Receipt Date: 20250827
  Transmission Date: 20251020
  Serious: No
  Sender: ALEXION PHARMACEUTICALS
  Company Number: US-AstraZeneca-CH-00896026AP

PATIENT
  Age: 75 Year
  Sex: Male

DRUGS (1)
  1. AIRSUPRA [Suspect]
     Active Substance: ALBUTEROL SULFATE\BUDESONIDE
     Indication: Sinusitis
     Route: 065

REACTIONS (3)
  - Therapy cessation [Unknown]
  - Device use issue [Unknown]
  - Device issue [Unknown]
